FAERS Safety Report 9132274 (Version 1)
Quarter: 2013Q1

REPORT INFORMATION
  Report Type: Spontaneous
  Country: AR (occurrence: AR)
  Receive Date: 20130301
  Receipt Date: 20130301
  Transmission Date: 20140127
  Serious: Yes (Other)
  Sender: FDA-Public Use
  Company Number: AR-ABBOTT-13P-007-1050679-00

PATIENT
  Age: 39 Year
  Sex: Male

DRUGS (5)
  1. RITONAVIR [Suspect]
     Indication: ANTIRETROVIRAL THERAPY
  2. ERGOTAMINE TARTRATE [Interacting]
     Indication: PRODUCT USED FOR UNKNOWN INDICATION
  3. PROPRANOLOL [Suspect]
     Indication: PROPHYLAXIS
  4. LAMIVUDINE [Concomitant]
     Indication: HIV INFECTION
  5. DIDANOSINE [Concomitant]
     Indication: HIV INFECTION

REACTIONS (3)
  - Ergot poisoning [Recovered/Resolved]
  - Splenic infarction [Recovered/Resolved]
  - Drug interaction [Recovered/Resolved]
